FAERS Safety Report 12722151 (Version 2)
Quarter: 2016Q4

REPORT INFORMATION
  Report Type: Spontaneous
  Country: US (occurrence: US)
  Receive Date: 20160907
  Receipt Date: 20161019
  Transmission Date: 20170207
  Serious: No
  Sender: FDA-Public Use
  Company Number: US-BAYER-2016-168120

PATIENT
  Age: 76 Year
  Sex: Female
  Weight: 55 kg

DRUGS (4)
  1. BAYER WOMENS [Suspect]
     Active Substance: ASPIRIN\CALCIUM CARBONATE
     Indication: ANTICOAGULANT THERAPY
     Dosage: 1 DF, ONCE
     Route: 048
     Dates: start: 20160827, end: 20160827
  2. BAYER GENUINE ASPIRIN [Suspect]
     Active Substance: ASPIRIN
     Indication: ANTICOAGULANT THERAPY
     Dosage: UNK, ONE USE
     Route: 048
     Dates: start: 20160826, end: 20160826
  3. BAYER FAST RELEASE [Suspect]
     Active Substance: ASPIRIN
     Indication: NASOPHARYNGITIS
  4. BAYER FAST RELEASE [Suspect]
     Active Substance: ASPIRIN
     Indication: HYPERSENSITIVITY

REACTIONS (2)
  - Abdominal pain upper [Recovered/Resolved]
  - Off label use [Unknown]

NARRATIVE: CASE EVENT DATE: 201608
